FAERS Safety Report 21954543 (Version 1)
Quarter: 2023Q1

REPORT INFORMATION
  Report Type: Spontaneous
  Country: AU (occurrence: AU)
  Receive Date: 20230205
  Receipt Date: 20230205
  Transmission Date: 20230418
  Serious: Yes (Other)
  Sender: FDA-Public Use
  Company Number: AU-CIPLA LTD.-2023AU00593

PATIENT

DRUGS (12)
  1. ANASTROZOLE [Suspect]
     Active Substance: ANASTROZOLE
     Indication: Radiotherapy
     Dosage: UNK
     Route: 065
  2. LETROZOLE [Suspect]
     Active Substance: LETROZOLE
     Indication: Breast cancer
     Dosage: 2.5 MILLIGRAM, QD
     Route: 065
  3. DENOSUMAB [Suspect]
     Active Substance: DENOSUMAB
     Indication: Breast cancer
     Dosage: 120 MILLIGRAM MONTHLY
     Route: 058
  4. QUETIAPINE [Suspect]
     Active Substance: QUETIAPINE
     Indication: Depression
  5. QUETIAPINE [Suspect]
     Active Substance: QUETIAPINE
     Indication: Anxiety
  6. QUETIAPINE [Suspect]
     Active Substance: QUETIAPINE
     Indication: Hysterectomy
  7. QUETIAPINE [Suspect]
     Active Substance: QUETIAPINE
     Indication: Uterine leiomyoma
  8. VALDOXAN [Suspect]
     Active Substance: AGOMELATINE
     Indication: Depression
  9. VALDOXAN [Suspect]
     Active Substance: AGOMELATINE
     Indication: Anxiety
  10. VALDOXAN [Suspect]
     Active Substance: AGOMELATINE
     Indication: Uterine leiomyoma
  11. VALDOXAN [Suspect]
     Active Substance: AGOMELATINE
     Indication: Hysterectomy
  12. PAROXETINE [Suspect]
     Active Substance: PAROXETINE
     Indication: Depression

REACTIONS (9)
  - Breast cancer metastatic [Not Recovered/Not Resolved]
  - Abdominal distension [Unknown]
  - Arthralgia [Not Recovered/Not Resolved]
  - Disease progression [Not Recovered/Not Resolved]
  - Fatigue [Not Recovered/Not Resolved]
  - Nausea [Recovered/Resolved]
  - Neutropenia [Unknown]
  - Rash [Recovered/Resolved]
  - Mobility decreased [Not Recovered/Not Resolved]
